FAERS Safety Report 8544997-7 (Version None)
Quarter: 2012Q3

REPORT INFORMATION
  Report Type: 
  Country: None (occurrence: None)
  Receive Date: 20120727
  Receipt Date: 20120719
  Transmission Date: 20120928
  Serious: Yes (Hospitalization)
  Sender: FDA-Public Use
  Company Number: US-GLAXOSMITHKLINE-A0987220A

PATIENT
  Age: 40 Year
  Sex: Female
  Weight: 69.5 kg

DRUGS (15)
  1. PRILOSEC [Concomitant]
  2. MELPHALAN HYDROCHLORIDE [Suspect]
     Indication: AMYLOIDOSIS
     Route: 042
     Dates: start: 20120612, end: 20120613
  3. PROCHLORPERAZINE MALEATE [Concomitant]
  4. BORTEZOMIB [Suspect]
     Indication: AMYLOIDOSIS
     Dosage: 1.3MGM2 CYCLIC
     Route: 042
     Dates: start: 20120417, end: 20120618
  5. LASIX [Concomitant]
  6. KLOR-CON [Concomitant]
  7. TAZORAC [Concomitant]
  8. ATIVAN [Concomitant]
  9. DUAC [Concomitant]
  10. IMODIUM [Concomitant]
  11. MINOCYCLINE HCL [Concomitant]
  12. DEXAMETHASONE [Suspect]
     Indication: AMYLOIDOSIS
     Dosage: 20MG CYCLIC
     Route: 042
     Dates: start: 20120417, end: 20120518
  13. LUPRON DEPOT [Concomitant]
  14. ACYCLOVIR [Concomitant]
  15. PREVIDENT [Concomitant]

REACTIONS (1)
  - PYREXIA [None]
